FAERS Safety Report 19753505 (Version 1)
Quarter: 2021Q3

REPORT INFORMATION
  Report Type: Spontaneous
  Country: CA (occurrence: CA)
  Receive Date: 20210827
  Receipt Date: 20210827
  Transmission Date: 20211014
  Serious: Yes (Other)
  Sender: FDA-Public Use
  Company Number: CA-SAMSUNG BIOEPIS-SB-2021-20478

PATIENT
  Age: 62 Year
  Sex: Male
  Weight: 83 kg

DRUGS (2)
  1. INFLIXIMAB [Suspect]
     Active Substance: INFLIXIMAB
     Indication: CROHN^S DISEASE
     Route: 042
  2. ACETAMINOPHEN. [Concomitant]
     Active Substance: ACETAMINOPHEN
     Indication: PREMEDICATION
     Route: 065

REACTIONS (8)
  - Abdominal distension [Unknown]
  - Blood pressure increased [Unknown]
  - Crohn^s disease [Unknown]
  - Fatigue [Unknown]
  - Therapeutic response shortened [Unknown]
  - Disease recurrence [Unknown]
  - Off label use [Unknown]
  - Condition aggravated [Unknown]
